FAERS Safety Report 23500438 (Version 5)
Quarter: 2024Q3

REPORT INFORMATION
  Report Type: Report from Study
  Country: US (occurrence: US)
  Receive Date: 20240208
  Receipt Date: 20240902
  Transmission Date: 20241016
  Serious: Yes (Other)
  Sender: TAKEDA
  Company Number: US-TAKEDA-2024TUS008530

PATIENT
  Sex: Male
  Weight: 76 kg

DRUGS (25)
  1. TEDUGLUTIDE [Suspect]
     Active Substance: TEDUGLUTIDE
     Indication: Pancreatic failure
     Dosage: 3.8 MILLIGRAM, QD
     Route: 058
  2. TEDUGLUTIDE [Suspect]
     Active Substance: TEDUGLUTIDE
     Indication: Pancreatic failure
     Dosage: 3.8 MILLIGRAM, QD
     Route: 058
  3. TEDUGLUTIDE [Suspect]
     Active Substance: TEDUGLUTIDE
     Indication: Pancreatic failure
     Dosage: 3.8 MILLIGRAM, QD
     Route: 058
  4. TEDUGLUTIDE [Suspect]
     Active Substance: TEDUGLUTIDE
     Indication: Pancreatic failure
     Dosage: 3.8 MILLIGRAM, QD
     Route: 058
  5. TEDUGLUTIDE [Suspect]
     Active Substance: TEDUGLUTIDE
     Indication: Malnutrition
     Dosage: 3.8 MILLIGRAM, QD
     Route: 058
  6. TEDUGLUTIDE [Suspect]
     Active Substance: TEDUGLUTIDE
     Indication: Malnutrition
     Dosage: 3.8 MILLIGRAM, QD
     Route: 058
  7. TEDUGLUTIDE [Suspect]
     Active Substance: TEDUGLUTIDE
     Indication: Malnutrition
     Dosage: 3.8 MILLIGRAM, QD
     Route: 058
  8. TEDUGLUTIDE [Suspect]
     Active Substance: TEDUGLUTIDE
     Indication: Malnutrition
     Dosage: 3.8 MILLIGRAM, QD
     Route: 058
  9. TEDUGLUTIDE [Suspect]
     Active Substance: TEDUGLUTIDE
     Dosage: 3.8 MILLIGRAM, QD
     Route: 058
  10. TEDUGLUTIDE [Suspect]
     Active Substance: TEDUGLUTIDE
     Dosage: 3.8 MILLIGRAM, QD
     Route: 058
  11. TEDUGLUTIDE [Suspect]
     Active Substance: TEDUGLUTIDE
     Dosage: 3.8 MILLIGRAM, QD
     Route: 058
  12. TEDUGLUTIDE [Suspect]
     Active Substance: TEDUGLUTIDE
     Dosage: 3.8 MILLIGRAM, QD
     Route: 058
  13. TEDUGLUTIDE [Suspect]
     Active Substance: TEDUGLUTIDE
     Dosage: 3.8 MILLIGRAM, QD
     Route: 058
  14. TEDUGLUTIDE [Suspect]
     Active Substance: TEDUGLUTIDE
     Dosage: 3.8 MILLIGRAM, QD
     Route: 058
  15. TEDUGLUTIDE [Suspect]
     Active Substance: TEDUGLUTIDE
     Dosage: 3.8 MILLIGRAM, QD
     Route: 058
  16. TEDUGLUTIDE [Suspect]
     Active Substance: TEDUGLUTIDE
     Dosage: 3.8 MILLIGRAM, QD
     Route: 058
  17. TEDUGLUTIDE [Suspect]
     Active Substance: TEDUGLUTIDE
     Dosage: 3.8 MILLIGRAM, QD
     Route: 058
  18. TEDUGLUTIDE [Suspect]
     Active Substance: TEDUGLUTIDE
     Dosage: 3.8 MILLIGRAM, QD
     Route: 058
  19. TEDUGLUTIDE [Suspect]
     Active Substance: TEDUGLUTIDE
     Dosage: 3.8 MILLIGRAM, QD
     Route: 058
  20. TEDUGLUTIDE [Suspect]
     Active Substance: TEDUGLUTIDE
     Dosage: 3.8 MILLIGRAM, QD
     Route: 058
  21. TIZANIDINE HYDROCHLORIDE [Concomitant]
     Active Substance: TIZANIDINE HYDROCHLORIDE
     Dosage: UNK
     Route: 065
  22. ONDANSETRON HYDROCHLORIDE [Concomitant]
     Active Substance: ONDANSETRON HYDROCHLORIDE
     Dosage: UNK
     Route: 065
  23. ARMODAFINIL [Concomitant]
     Active Substance: ARMODAFINIL
     Dosage: UNK
     Route: 065
  24. TEMAZEPAM [Concomitant]
     Active Substance: TEMAZEPAM
     Dosage: UNK
     Route: 065
  25. OXYCODONE HYDROCHLORIDE [Concomitant]
     Active Substance: OXYCODONE HYDROCHLORIDE
     Dosage: UNK UNK, Q12H
     Route: 065

REACTIONS (16)
  - Neoplasm malignant [Unknown]
  - Cerebrovascular accident [Unknown]
  - Constipation [Unknown]
  - Taste disorder [Unknown]
  - Post procedural complication [Unknown]
  - Asthenia [Unknown]
  - Illness [Unknown]
  - Bowel movement irregularity [Unknown]
  - Sedation [Unknown]
  - Urine output increased [Unknown]
  - Weight decreased [Unknown]
  - Product use in unapproved indication [Unknown]
  - Decreased appetite [Unknown]
  - Nausea [Unknown]
  - Feeling abnormal [Unknown]
  - Pain [Not Recovered/Not Resolved]
